FAERS Safety Report 14345659 (Version 7)
Quarter: 2018Q2

REPORT INFORMATION
  Report Type: Spontaneous
  Country: CA (occurrence: CA)
  Receive Date: 20180103
  Receipt Date: 20180418
  Transmission Date: 20180711
  Serious: Yes (Other)
  Sender: FDA-Public Use
  Company Number: CA-CELLTRION INC.-2016CA010755

PATIENT

DRUGS (15)
  1. INFLECTRA [Suspect]
     Active Substance: INFLIXIMAB-DYYB
     Dosage: 395 MG , CYCLIC, THEN EVERY 6 WEEKS FOR 6 MONTHS
     Route: 042
     Dates: start: 20160527, end: 20170919
  2. INFLECTRA [Suspect]
     Active Substance: INFLIXIMAB-DYYB
     Dosage: 7 MG/KG, UNK
     Route: 042
     Dates: start: 20170919, end: 20170919
  3. INFLECTRA [Suspect]
     Active Substance: INFLIXIMAB-DYYB
     Indication: RHEUMATOID ARTHRITIS
     Dosage: 567MG (7MG/KG) THEN EVERY 6 WEEKS
     Route: 042
     Dates: start: 20160527, end: 20170919
  4. FOLIC ACID. [Concomitant]
     Active Substance: FOLIC ACID
     Dosage: UNK
  5. NORFLOXACIN [Concomitant]
     Active Substance: NORFLOXACIN
     Dosage: 400 MG, BID
     Dates: start: 20170622
  6. INFLECTRA [Suspect]
     Active Substance: INFLIXIMAB-DYYB
     Dosage: 360 MG (4.4 MG/KG)
     Route: 042
     Dates: start: 20171214, end: 20171214
  7. VITAMIN B12 [Concomitant]
     Active Substance: CYANOCOBALAMIN
     Dosage: 5000 UG, UNK
     Route: 060
  8. INFLECTRA [Suspect]
     Active Substance: INFLIXIMAB-DYYB
     Dosage: 395 MG, CYCLIC (THEN EVERY 6 WEEKS FOR 6 MONTHS)
     Route: 042
  9. INFLECTRA [Suspect]
     Active Substance: INFLIXIMAB-DYYB
     Dosage: 360 MG (4.4 MG/KG)
     Route: 042
     Dates: start: 20171214, end: 20171214
  10. METHOTREXATE. [Concomitant]
     Active Substance: METHOTREXATE
     Dosage: UNK, INJECTION
     Dates: start: 2007
  11. NAPROXEN. [Concomitant]
     Active Substance: NAPROXEN
     Dosage: 500 MG, AS NEEDED
  12. MORPHINE [Concomitant]
     Active Substance: MORPHINE
     Dosage: UNK, AS NEEDED
  13. INFLECTRA [Suspect]
     Active Substance: INFLIXIMAB-DYYB
     Dosage: 229.8 MG, WEEKS 0, 2,6 (THEN EVERY 8 WEEKS FOR 6 MONTHS)
     Route: 042
     Dates: start: 20160628
  14. INFLECTRA [Suspect]
     Active Substance: INFLIXIMAB-DYYB
     Dosage: 405MG (5MG/KG) EVERY 6 WEEKS
     Route: 042
     Dates: start: 20171031
  15. DIAZEPAM. [Concomitant]
     Active Substance: DIAZEPAM
     Dosage: UNK, AS NEEDED

REACTIONS (15)
  - Blood pressure increased [Unknown]
  - Vision blurred [Not Recovered/Not Resolved]
  - Underdose [Unknown]
  - Eye haemorrhage [Not Recovered/Not Resolved]
  - Joint swelling [Unknown]
  - Pain in extremity [Unknown]
  - Retinal artery occlusion [Unknown]
  - Insomnia [Recovered/Resolved]
  - Headache [Recovering/Resolving]
  - Product use issue [Unknown]
  - Eye infection [Not Recovered/Not Resolved]
  - Feeling abnormal [Unknown]
  - Blindness [Unknown]
  - Drug effect incomplete [Recovered/Resolved]
  - Abdominal discomfort [Unknown]

NARRATIVE: CASE EVENT DATE: 20160628
